FAERS Safety Report 18646147 (Version 8)
Quarter: 2021Q3

REPORT INFORMATION
  Report Type: Other
  Country: LB (occurrence: LB)
  Receive Date: 20201222
  Receipt Date: 20210903
  Transmission Date: 20211014
  Serious: Yes (Other)
  Sender: FDA-Public Use
  Company Number: LB-ROCHE-2642172

PATIENT
  Age: 62 Year
  Sex: Female

DRUGS (5)
  1. HERCEPTIN [Suspect]
     Active Substance: TRASTUZUMAB
     Indication: BREAST CANCER METASTATIC
     Route: 058
     Dates: start: 20200513, end: 20210707
  2. BLOPRESS [Concomitant]
     Active Substance: CANDESARTAN CILEXETIL
     Indication: HYPERTENSION
     Route: 048
     Dates: start: 2019
  3. PERJETA [Suspect]
     Active Substance: PERTUZUMAB
     Indication: BREAST CANCER METASTATIC
     Route: 042
     Dates: start: 20200219, end: 20210707
  4. CONCOR [Concomitant]
     Active Substance: BISOPROLOL FUMARATE
     Indication: HYPERTENSION
     Route: 048
     Dates: start: 2018
  5. HERCEPTIN [Suspect]
     Active Substance: TRASTUZUMAB
     Indication: BREAST CANCER METASTATIC
     Route: 041
     Dates: start: 20200219, end: 20200513

REACTIONS (18)
  - Mitral valve incompetence [Unknown]
  - Ventricular dyskinesia [Unknown]
  - Oedema peripheral [Unknown]
  - Malaise [Unknown]
  - Dizziness [Not Recovered/Not Resolved]
  - Ejection fraction decreased [Unknown]
  - Cardiomyopathy [Not Recovered/Not Resolved]
  - Vision blurred [Unknown]
  - Catheter placement [Recovering/Resolving]
  - Cardiac disorder [Unknown]
  - Mass [Unknown]
  - Blood pressure inadequately controlled [Unknown]
  - Eye haemorrhage [Unknown]
  - Diastolic dysfunction [Unknown]
  - Laparoscopic surgery [Recovered/Resolved]
  - Aortic valve calcification [Unknown]
  - Cataract [Not Recovered/Not Resolved]
  - Headache [Not Recovered/Not Resolved]

NARRATIVE: CASE EVENT DATE: 20200706
